FAERS Safety Report 6312453-2 (Version None)
Quarter: 2009Q3

REPORT INFORMATION
  Report Type: 
  Country: None (occurrence: None)
  Receive Date: 20090813
  Receipt Date: 20090803
  Transmission Date: 20100115
  Serious: Yes (Other)
  Sender: FDA-Public Use
  Company Number: DSU-2009-01494

PATIENT
  Age: 48 Year
  Sex: Female
  Weight: 69.8539 kg

DRUGS (8)
  1. WELCHOL [Suspect]
     Indication: HYPERLIPIDAEMIA
     Dosage: 3750 MG (1875 MG, BID), PER ORAL; ADMINISTRATON CONTINUED
     Route: 048
     Dates: start: 20090319
  2. COUMADIN (WARFAIN SODIUM) (WARFARIN SODIUM) [Concomitant]
  3. METOPROLOL SUCCINATE [Concomitant]
  4. ALPRAZOLAM (ALPROAZOLAM) (ALPROAZOLAM) [Concomitant]
  5. ALBUTEROL (SALBUTAMOL) (SALBUTAMOL) [Concomitant]
  6. ZOLPIDEM (ZOLPIDEM) (ZOLPIDEM) [Concomitant]
  7. ASPIRIN [Concomitant]
  8. SAVELLA (MILNACIPRAN HYDROCHLORIDE) (MILNACIPRAN HYDROCHLORIDE) [Concomitant]

REACTIONS (7)
  - BLISTER [None]
  - NAUSEA [None]
  - PAIN [None]
  - PRODUCT QUALITY ISSUE [None]
  - THROMBOSIS [None]
  - VOMITING [None]
  - WEIGHT DECREASED [None]
